FAERS Safety Report 4482528-1 (Version None)
Quarter: 2004Q4

REPORT INFORMATION
  Report Type: 
  Country: None (occurrence: None)
  Receive Date: 20041022
  Receipt Date: 20040219
  Transmission Date: 20050328
  Serious: Yes (Hospitalization)
  Sender: FDA-Public Use
  Company Number: US-BRISTOL-MYERS SQUIBB COMPANY-12510772

PATIENT
  Age: 75 Year
  Sex: Male
  Weight: 78 kg

DRUGS (22)
  1. CISPLATIN [Suspect]
     Indication: MESOTHELIOMA
     Route: 042
     Dates: start: 20031024, end: 20031114
  2. PEMETREXED DISODIUM [Suspect]
     Indication: MESOTHELIOMA
     Route: 042
     Dates: start: 20031024, end: 20031114
  3. FOLIC ACID [Concomitant]
     Indication: VITAMIN SUPPLEMENTATION
     Dates: start: 20031011
  4. ATENOLOL [Concomitant]
     Indication: CARDIAC DISORDER
     Dates: start: 20031011
  5. ZOCOR [Concomitant]
     Indication: BLOOD CHOLESTEROL
     Dates: start: 20031011
  6. IMDUR [Concomitant]
     Indication: ANGINA PECTORIS
     Dates: start: 20031011
  7. GLUCOPHAGE [Concomitant]
     Indication: DIABETES MELLITUS
     Dates: start: 20031011
  8. AMARYL [Concomitant]
     Indication: DIABETES MELLITUS
     Dates: start: 20031011
  9. LASIX [Concomitant]
     Indication: POLYURIA
     Dates: start: 20031011
  10. DARVOCET-N 100 [Concomitant]
     Indication: PAIN
     Dates: start: 20031011, end: 20031114
  11. ASPIRIN [Concomitant]
     Indication: ANTICOAGULANT THERAPY
     Dates: start: 20031011, end: 20031114
  12. OMEGA-3 MARINE TRIGLYCERIDES [Concomitant]
     Indication: NUTRITIONAL SUPPORT
     Dates: start: 20031011
  13. CHONDROITIN + GLUCOSAMINE [Concomitant]
     Indication: NUTRITIONAL SUPPORT
     Dates: start: 20031011
  14. LISINOPRIL [Concomitant]
     Dates: start: 20031024
  15. COMPAZINE [Concomitant]
     Indication: NAUSEA
     Dates: start: 20031031
  16. ROXICET [Concomitant]
     Indication: PAIN
     Dates: start: 20031031
  17. KYTRIL [Concomitant]
     Indication: NAUSEA
     Dates: start: 20031031, end: 20031114
  18. DECADRON [Concomitant]
     Indication: PREMEDICATION
     Dates: start: 20031011
  19. SLO-MAG [Concomitant]
     Indication: NUTRITIONAL SUPPORT
     Dates: start: 20031114
  20. POTASSIUM [Concomitant]
     Indication: NUTRITIONAL SUPPORT
     Dates: start: 20031114
  21. EMEND [Concomitant]
     Indication: NAUSEA
     Dates: start: 20031114
  22. B12 [Concomitant]
     Indication: VITAMIN SUPPLEMENTATION
     Dates: start: 20031010

REACTIONS (6)
  - ASTHENIA [None]
  - ATAXIA [None]
  - CONFUSIONAL STATE [None]
  - DEHYDRATION [None]
  - ELECTROLYTE IMBALANCE [None]
  - GRAND MAL CONVULSION [None]
